FAERS Safety Report 20515262 (Version 1)
Quarter: 2022Q1

REPORT INFORMATION
  Report Type: Spontaneous
  Country: IN (occurrence: IN)
  Receive Date: 20220224
  Receipt Date: 20220224
  Transmission Date: 20220423
  Serious: Yes (Death)
  Sender: FDA-Public Use
  Company Number: IN-PFIZER INC-2019459536

PATIENT
  Age: 72 Year
  Sex: Male

DRUGS (2)
  1. SUTENT [Suspect]
     Active Substance: SUNITINIB MALATE
     Indication: Metastatic renal cell carcinoma
     Dosage: 25 MG, 1X/DAY
     Route: 048
     Dates: start: 20191021
  2. SUTENT [Suspect]
     Active Substance: SUNITINIB MALATE
     Dosage: 37.5 MG, CYCLIC (TWO WEEKS ON AND ONE WEEK OFF)
     Route: 048
     Dates: end: 202201

REACTIONS (11)
  - Death [Fatal]
  - Musculoskeletal chest pain [Unknown]
  - Abdominal pain upper [Unknown]
  - Cough [Unknown]
  - Nasopharyngitis [Unknown]
  - Oropharyngeal discomfort [Unknown]
  - Gait inability [Recovered/Resolved]
  - Feeding disorder [Recovered/Resolved]
  - COVID-19 [Recovered/Resolved]
  - Infection [Unknown]
  - Neoplasm progression [Unknown]

NARRATIVE: CASE EVENT DATE: 20220131
